FAERS Safety Report 13394828 (Version 1)
Quarter: 2017Q2

REPORT INFORMATION
  Report Type: Spontaneous
  Country: SG (occurrence: SG)
  Receive Date: 20170403
  Receipt Date: 20170403
  Transmission Date: 20170830
  Serious: Yes (Life-Threatening, Hospitalization, Other)
  Sender: FDA-Public Use
  Company Number: SG-ACCORD-049759

PATIENT
  Age: 52 Year
  Sex: Male

DRUGS (2)
  1. AMITRIPTYLINE [Suspect]
     Active Substance: AMITRIPTYLINE
     Dosage: 20 TABLETS, APPROXIMATELY 500 MG IN TOTAL APPROX. 8 MG/KG
     Route: 048
  2. NITRAZEPAM [Concomitant]
     Active Substance: NITRAZEPAM

REACTIONS (9)
  - Intentional overdose [Unknown]
  - Pupil fixed [Unknown]
  - Areflexia [Recovered/Resolved]
  - Aggression [Unknown]
  - Suicide attempt [Unknown]
  - Ventricular fibrillation [Unknown]
  - Toxicity to various agents [Unknown]
  - Mydriasis [Unknown]
  - Cardiac arrest [Unknown]
